FAERS Safety Report 6293026-7 (Version None)
Quarter: 2009Q3

REPORT INFORMATION
  Report Type: 
  Country: None (occurrence: None)
  Receive Date: 20090729
  Receipt Date: 20090722
  Transmission Date: 20100115
  Serious: No
  Sender: FDA-Public Use
  Company Number: 2009-201132-NL

PATIENT
  Age: 23 Year
  Sex: Female

DRUGS (7)
  1. MIRTAZAPINE [Suspect]
     Indication: DEPRESSION
     Dosage: 15 MG, ORAL
     Route: 048
     Dates: start: 20090608, end: 20090609
  2. AMOXICILLIN [Suspect]
     Indication: DEPRESSION
     Dosage: 2000 MG, ORAL
     Route: 048
     Dates: start: 20090615, end: 20090621
  3. ISOPROMETHAZINE HYDROCHLORIDE [Suspect]
     Indication: DEPRESSION
     Dosage: 25 MG, ORAL
     Route: 048
     Dates: start: 20090604, end: 20090609
  4. CLARITHROMYCIN [Suspect]
     Indication: DEPRESSION
     Dosage: 1000 MG , ORAL
     Route: 048
     Dates: start: 20090615, end: 20090621
  5. PANTOPRAZOLE SODIUM [Suspect]
     Indication: HELICOBACTER INFECTION
     Dosage: 80 MG, ORAL
     Route: 048
     Dates: start: 20090604
  6. VALDOXAN [Suspect]
     Indication: DEPRESSION
     Dosage: 25 MG, ORAL
     Route: 048
     Dates: start: 20090605, end: 20090626
  7. OLANZAPINE [Suspect]
     Indication: DEPRESSION
     Dosage: 5 MG, ORAL
     Route: 048
     Dates: start: 20090610, end: 20090614

REACTIONS (3)
  - BLOOD PROLACTIN INCREASED [None]
  - BREAST DISCOMFORT [None]
  - BREAST ENLARGEMENT [None]
